FAERS Safety Report 12882367 (Version 1)
Quarter: 2016Q4

REPORT INFORMATION
  Report Type: Spontaneous
  Country: AR (occurrence: AR)
  Receive Date: 20161025
  Receipt Date: 20161025
  Transmission Date: 20170207
  Serious: Yes (Death, Hospitalization, Other)
  Sender: FDA-Public Use
  Company Number: AR-SA-2016SA062568

PATIENT
  Age: 37 Year
  Sex: Female

DRUGS (4)
  1. CAPRELSA [Suspect]
     Active Substance: VANDETANIB
     Indication: MEDULLARY THYROID CANCER
     Dosage: EVERY DAY
     Route: 048
     Dates: end: 20150401
  2. CALCIUM [Concomitant]
     Active Substance: CALCIUM
     Dosage: 3 TO 4 G
  3. CAPRELSA [Suspect]
     Active Substance: VANDETANIB
     Indication: MEDULLARY THYROID CANCER
     Route: 048
     Dates: start: 201402
  4. CAPRELSA [Suspect]
     Active Substance: VANDETANIB
     Indication: MEDULLARY THYROID CANCER
     Route: 048
     Dates: start: 201403

REACTIONS (6)
  - Ovarian necrosis [Unknown]
  - Ovarian cyst [Fatal]
  - Rash [Recovered/Resolved]
  - Intestinal perforation [Fatal]
  - Cushing^s syndrome [Fatal]
  - Peritonitis [Unknown]

NARRATIVE: CASE EVENT DATE: 20150401
